FAERS Safety Report 9889237 (Version 2)
Quarter: 2014Q1

REPORT INFORMATION
  Report Type: Spontaneous
  Country: US (occurrence: US)
  Receive Date: 20140211
  Receipt Date: 20140222
  Transmission Date: 20141002
  Serious: No
  Sender: FDA-Public Use
  Company Number: US-009507513-1402USA005189

PATIENT
  Age: 65 Year
  Sex: Female
  Weight: 107.3 kg

DRUGS (7)
  1. OXYTROL FOR WOMEN [Suspect]
     Indication: URINARY INCONTINENCE
     Dosage: 1 DF, Q4D
     Route: 062
     Dates: start: 20131209, end: 20131225
  2. LANTUS [Concomitant]
     Indication: DIABETES MELLITUS
     Dosage: UNK, UNKNOWN
  3. AMYTRIL [Concomitant]
     Indication: DIABETES MELLITUS
     Dosage: UNK, UNKNOWN
  4. ENALAPRIL MALEATE [Concomitant]
     Indication: CORONARY ARTERY DISEASE
     Dosage: UNK, UNKNOWN
  5. ENALAPRIL MALEATE [Concomitant]
     Indication: CAROTID ARTERY STENT INSERTION
  6. ASPIRIN [Concomitant]
     Indication: CORONARY ARTERY DISEASE
     Dosage: UNK, UNKNOWN
  7. ASPIRIN [Concomitant]
     Indication: CAROTID ARTERY STENT INSERTION

REACTIONS (2)
  - Dyspepsia [Recovered/Resolved]
  - Eructation [Recovered/Resolved]
